FAERS Safety Report 18441658 (Version 2)
Quarter: 2020Q4

REPORT INFORMATION
  Report Type: Spontaneous
  Country: FR (occurrence: FR)
  Receive Date: 20201029
  Receipt Date: 20201204
  Transmission Date: 20210114
  Serious: Yes (Hospitalization)
  Sender: FDA-Public Use
  Company Number: FR-MYLANLABS-2020M1090031

PATIENT
  Age: 65 Year
  Sex: Female
  Weight: 55 kg

DRUGS (2)
  1. ADALIMUMAB [Suspect]
     Active Substance: ADALIMUMAB
     Indication: SPONDYLITIS
     Dosage: 80 MILLIGRAM, MONTHLY
     Route: 058
     Dates: start: 202001, end: 202006
  2. SIMPONI [Suspect]
     Active Substance: GOLIMUMAB
     Indication: SPONDYLITIS
     Dosage: 1 DOSAGE FORM, TOTAL
     Route: 058
     Dates: start: 20200713, end: 20200713

REACTIONS (6)
  - Renal vasculitis [Recovering/Resolving]
  - Hypersensitivity vasculitis [Recovering/Resolving]
  - Central nervous system vasculitis [Recovering/Resolving]
  - Diffuse vasculitis [Recovering/Resolving]
  - Product use in unapproved indication [Unknown]
  - Myocarditis [Recovering/Resolving]

NARRATIVE: CASE EVENT DATE: 202008
